FAERS Safety Report 8475744-5 (Version None)
Quarter: 2012Q2

REPORT INFORMATION
  Report Type: 
  Country: None (occurrence: None)
  Receive Date: 20120628
  Receipt Date: 20120614
  Transmission Date: 20120825
  Serious: Yes (Death)
  Sender: FDA-Public Use
  Company Number: FR-MYLANLABS-2012S1012364

PATIENT
  Age: 6 Decade
  Sex: Female

DRUGS (2)
  1. MERCAPTOPURINE [Suspect]
     Indication: GASTROINTESTINAL DISORDER
     Route: 065
  2. AZATHIOPRINE [Suspect]
     Indication: GASTROINTESTINAL DISORDER
     Route: 065

REACTIONS (2)
  - T-CELL LYMPHOMA [None]
  - METASTASES TO CENTRAL NERVOUS SYSTEM [None]
